FAERS Safety Report 12133710 (Version 1)
Quarter: 2016Q1

REPORT INFORMATION
  Report Type: Spontaneous
  Country: SG (occurrence: SG)
  Receive Date: 20160301
  Receipt Date: 20160301
  Transmission Date: 20160526
  Serious: Yes (Hospitalization, Other)
  Sender: FDA-Public Use
  Company Number: SG-BAYER-2016-037972

PATIENT
  Age: 43 Year
  Sex: Female
  Weight: 60.1 kg

DRUGS (1)
  1. STIVARGA [Suspect]
     Active Substance: REGORAFENIB
     Indication: RECTAL CANCER METASTATIC
     Dosage: 120 MG 1 TIME DAILY
     Route: 048
     Dates: start: 20151119, end: 20151217

REACTIONS (3)
  - Coagulopathy [Not Recovered/Not Resolved]
  - Liver function test abnormal [Not Recovered/Not Resolved]
  - Cholestatic pruritus [Not Recovered/Not Resolved]

NARRATIVE: CASE EVENT DATE: 20151217
